FAERS Safety Report 14266085 (Version 1)
Quarter: 2017Q4

REPORT INFORMATION
  Report Type: Report from Study
  Country: GB (occurrence: GB)
  Receive Date: 20171209
  Receipt Date: 20171209
  Transmission Date: 20180321
  Serious: Yes (Hospitalization, Other)
  Sender: FDA-Public Use
  Company Number: GB-ASPEN-GLO2017GB007970

PATIENT
  Age: 77 Year
  Sex: Male

DRUGS (20)
  1. ZOMETA [Concomitant]
     Active Substance: ZOLEDRONIC ACID
     Indication: PROPHYLAXIS
     Dosage: 3.3 MG
     Route: 041
     Dates: start: 20160209, end: 20171003
  2. VELCADE [Suspect]
     Active Substance: BORTEZOMIB
     Indication: PLASMA CELL MYELOMA
     Dosage: 2.2 MG/M2
     Route: 058
  3. FRUSEMIDE [Concomitant]
     Active Substance: FUROSEMIDE
     Dosage: 40 MG, QD
     Route: 048
     Dates: start: 20170718, end: 20170718
  4. VELCADE [Suspect]
     Active Substance: BORTEZOMIB
     Dosage: 1.8 MG/M2
     Route: 058
  5. OMEPRAZOLE. [Concomitant]
     Active Substance: OMEPRAZOLE
     Indication: PROPHYLAXIS
     Dosage: 20 MG, QD
     Route: 048
     Dates: start: 20160516
  6. CO-AMOXICLAV [Concomitant]
     Active Substance: AMOXICILLIN\CLAVULANIC ACID
     Indication: COUGH
     Dosage: 1875 MG, QD
     Route: 048
     Dates: start: 20170606, end: 20170610
  7. FRUSEMIDE [Concomitant]
     Active Substance: FUROSEMIDE
     Indication: GENERALISED OEDEMA
     Dosage: 20 MG, QD
     Route: 048
     Dates: start: 20170725
  8. BISOPROLOL [Concomitant]
     Active Substance: BISOPROLOL
     Indication: SINUS TACHYCARDIA
     Dosage: 2.5 MG, QD
     Route: 048
     Dates: start: 20170921, end: 20171003
  9. LACTULOSE. [Concomitant]
     Active Substance: LACTULOSE
     Indication: CONSTIPATION
     Dosage: 10 ML
     Route: 048
     Dates: start: 20170812
  10. FRUSEMIDE [Concomitant]
     Active Substance: FUROSEMIDE
     Indication: CARDIOMEGALY
     Dosage: 40 MG QD
     Route: 048
     Dates: start: 20170718, end: 20170718
  11. ACICLOVIR [Concomitant]
     Active Substance: ACYCLOVIR
     Indication: PREMEDICATION
     Dosage: 800 MG, QD
     Route: 048
     Dates: start: 20160515, end: 20171003
  12. VELCADE [Suspect]
     Active Substance: BORTEZOMIB
     Dosage: UNK
     Route: 058
  13. OMEPRAZOLE. [Concomitant]
     Active Substance: OMEPRAZOLE
     Indication: STEROID THERAPY
     Dosage: 20 MG, QD
     Route: 048
     Dates: start: 20160516
  14. BISOPROLOL [Concomitant]
     Active Substance: BISOPROLOL
     Dosage: 2.5 MG QD
     Route: 048
     Dates: start: 20170815, end: 20170815
  15. DEXAMETHASONE. [Suspect]
     Active Substance: DEXAMETHASONE
     Indication: PLASMA CELL MYELOMA
     Dosage: UNK
     Route: 048
  16. LOPERAMIDE [Concomitant]
     Active Substance: LOPERAMIDE
     Indication: DIARRHOEA
     Dosage: 2 MG
     Route: 048
     Dates: start: 20170829
  17. FRUSEMIDE [Concomitant]
     Active Substance: FUROSEMIDE
     Dosage: 20 MG QD
     Route: 048
     Dates: start: 20170725
  18. HYDROMOL [Concomitant]
     Indication: ACTINIC KERATOSIS
     Dosage: UNK
     Route: 065
     Dates: start: 20160511
  19. VENETOCLAX. [Suspect]
     Active Substance: VENETOCLAX
     Indication: PLASMA CELL MYELOMA
     Dosage: UNK
     Route: 048
  20. BISOPROLOL [Concomitant]
     Active Substance: BISOPROLOL
     Dosage: 5 MG QD
     Route: 048
     Dates: start: 20171003

REACTIONS (1)
  - Cardiac failure [Not Recovered/Not Resolved]

NARRATIVE: CASE EVENT DATE: 20171023
